FAERS Safety Report 8646438 (Version 3)
Quarter: 2012Q4

REPORT INFORMATION
  Report Type: Report from Study
  Country: AU (occurrence: AU)
  Receive Date: 20120702
  Receipt Date: 20121023
  Transmission Date: 20130627
  Serious: Yes (Other)
  Sender: FDA-Public Use
  Company Number: AU-AMGEN-AUSCT2012039878

PATIENT
  Age: 37 Year
  Sex: Female

DRUGS (1)
  1. DENOSUMAB [Suspect]
     Indication: BONE GIANT CELL TUMOUR
     Dosage: 120 mg, q4wk
     Route: 058
     Dates: start: 20090729, end: 20100425

REACTIONS (1)
  - Lung adenocarcinoma [Recovered/Resolved]
